FAERS Safety Report 5700199-0 (Version None)
Quarter: 2008Q2

REPORT INFORMATION
  Report Type: 
  Country: None (occurrence: None)
  Receive Date: 20080409
  Receipt Date: 20080401
  Transmission Date: 20081010
  Serious: Yes (Other)
  Sender: FDA-Public Use
  Company Number: US-JNJFOC-20080400865

PATIENT
  Sex: Female
  Weight: 64.86 kg

DRUGS (5)
  1. DOXIL [Suspect]
     Indication: STEM CELL TRANSPLANT
     Dosage: 26 MG DILUTED IN 250 ML INFUSED 5.2MG AT THE FIRST HOUR
     Route: 042
  2. ALOXI [Concomitant]
     Indication: PROPHYLAXIS OF NAUSEA AND VOMITING
     Route: 065
  3. DECADRON [Concomitant]
     Indication: PREMEDICATION
     Route: 065
  4. GEMZAR [Concomitant]
     Indication: STEM CELL TRANSPLANT
     Route: 065
  5. NAVELBINE [Concomitant]
     Indication: STEM CELL TRANSPLANT
     Route: 065

REACTIONS (2)
  - INFUSION RELATED REACTION [None]
  - OFF LABEL USE [None]
